FAERS Safety Report 13579683 (Version 1)
Quarter: 2017Q2

REPORT INFORMATION
  Report Type: Spontaneous
  Country: US (occurrence: US)
  Receive Date: 20170525
  Receipt Date: 20170525
  Transmission Date: 20170830
  Serious: Yes (Death, Other)
  Sender: FDA-Public Use
  Company Number: US-CLINIGEN GROUP PLC/ CLINIGEN HEALTHCARE LTD-E2B_00004334

PATIENT
  Age: 27 Year
  Sex: Male

DRUGS (8)
  1. DIFLUCAN [Concomitant]
     Active Substance: FLUCONAZOLE
     Indication: PROPHYLAXIS
     Route: 048
  2. MEGACE [Concomitant]
     Active Substance: MEGESTROL ACETATE
     Indication: DECREASED APPETITE
     Route: 048
  3. FOSCAVIR [Suspect]
     Active Substance: FOSCARNET SODIUM
     Indication: CYTOMEGALOVIRUS CHORIORETINITIS
     Dosage: DOSE: 3000 MG TOTAL DAILY DOSE: 9000 MG
     Route: 042
  4. FOSCAVIR [Suspect]
     Active Substance: FOSCARNET SODIUM
     Dosage: DOSE: 4500 MG TOTAL DAILY DOSE: 4500 MG
     Route: 042
  5. DAPSONE. [Concomitant]
     Active Substance: DAPSONE
     Indication: PNEUMOCYSTIS JIROVECII PNEUMONIA
     Route: 048
  6. AZT [Concomitant]
     Active Substance: ZIDOVUDINE
     Indication: VIRAL INFECTION
     Route: 048
     Dates: end: 19940308
  7. DDI [Concomitant]
     Active Substance: DIDANOSINE
     Indication: VIRAL INFECTION
     Route: 048
     Dates: end: 19940308
  8. BIAXIN [Concomitant]
     Active Substance: CLARITHROMYCIN
     Indication: PROPHYLAXIS
     Route: 048

REACTIONS (3)
  - Diabetes insipidus [Recovering/Resolving]
  - Hyperchloraemia [Recovering/Resolving]
  - Hypernatraemia [Unknown]

NARRATIVE: CASE EVENT DATE: 19931224
